FAERS Safety Report 18947255 (Version 1)
Quarter: 2021Q1

REPORT INFORMATION
  Report Type: Spontaneous
  Country: US (occurrence: US)
  Receive Date: 20210226
  Receipt Date: 20210226
  Transmission Date: 20210420
  Serious: Yes (Other)
  Sender: FDA-Public Use
  Company Number: US-ENDO PHARMACEUTICALS INC-2021-001242

PATIENT
  Sex: Male

DRUGS (2)
  1. PERCOCET [Suspect]
     Active Substance: ACETAMINOPHEN\OXYCODONE HYDROCHLORIDE
     Indication: PRODUCT USED FOR UNKNOWN INDICATION
     Dosage: UNK UNKNOWN, UNK
     Route: 065
  2. OPIATES [Suspect]
     Active Substance: UNSPECIFIED INGREDIENT
     Indication: ARTHROPATHY
     Dosage: UNK UNKNOWN, UNK
     Route: 065
     Dates: end: 201812

REACTIONS (7)
  - Osteoporosis [Unknown]
  - Pelvic fracture [Unknown]
  - Cervical vertebral fracture [Unknown]
  - Dependence [Recovered/Resolved]
  - Hypertension [Unknown]
  - Femur fracture [Unknown]
  - Seizure [Recovered/Resolved]
